FAERS Safety Report 15734900 (Version 2)
Quarter: 2018Q4

REPORT INFORMATION
  Report Type: Spontaneous
  Country: FR (occurrence: FR)
  Receive Date: 20181218
  Receipt Date: 20181219
  Transmission Date: 20190205
  Serious: Yes (Other)
  Sender: FDA-Public Use
  Company Number: FR-CELGENEUS-FRA-20181203046

PATIENT
  Age: 39 Year
  Sex: Male

DRUGS (2)
  1. OTEZLA [Suspect]
     Active Substance: APREMILAST
     Indication: PSORIASIS
     Dosage: 60 MILLIGRAM
     Route: 048
     Dates: start: 20180903
  2. OTEZLA [Suspect]
     Active Substance: APREMILAST
     Dosage: 30 MILLIGRAM
     Route: 048
     Dates: end: 20181203

REACTIONS (8)
  - Feeling drunk [Recovered/Resolved]
  - Nausea [Unknown]
  - Feeling drunk [Unknown]
  - Negative thoughts [Unknown]
  - Nausea [Recovered/Resolved]
  - Muscular weakness [Unknown]
  - Muscular weakness [Recovered/Resolved]
  - Negative thoughts [Recovered/Resolved]
